FAERS Safety Report 7629736-6 (Version None)
Quarter: 2011Q3

REPORT INFORMATION
  Report Type: 
  Country: None (occurrence: None)
  Receive Date: 20110722
  Receipt Date: 20110719
  Transmission Date: 20111222
  Serious: Yes (Hospitalization)
  Sender: FDA-Public Use
  Company Number: IT-ROCHE-790890

PATIENT
  Sex: Male
  Weight: 80 kg

DRUGS (6)
  1. OXCARBAZEPINE [Concomitant]
     Indication: GLIOBLASTOMA
     Route: 048
     Dates: start: 20110310
  2. IRINOTECAN HCL [Suspect]
     Indication: GLIOBLASTOMA
     Route: 042
     Dates: start: 20110414, end: 20110428
  3. RABEPRAZOLE SODIUM [Concomitant]
     Indication: GLIOBLASTOMA
     Route: 048
     Dates: start: 20110401
  4. BEVACIZUMAB [Suspect]
     Indication: GLIOBLASTOMA
     Route: 042
     Dates: start: 20110414
  5. LEVETIRACETAM [Concomitant]
     Indication: GLIOBLASTOMA
     Route: 048
     Dates: start: 20100110
  6. DEXAMETHASONE [Concomitant]
     Indication: GLIOBLASTOMA
     Route: 030
     Dates: start: 20110401

REACTIONS (1)
  - HYPOKINESIA [None]
